FAERS Safety Report 7842380-0 (Version None)
Quarter: 2011Q4

REPORT INFORMATION
  Report Type: 
  Country: None (occurrence: None)
  Receive Date: 20111025
  Receipt Date: 20111024
  Transmission Date: 20120403
  Serious: Yes (Other)
  Sender: FDA-Public Use
  Company Number: GB-JNJFOC-20100109378

PATIENT
  Age: 33 Year
  Sex: Male

DRUGS (2)
  1. RISPERIDONE [Suspect]
     Indication: SCHIZOPHRENIA
     Route: 065
  2. SERTRALINE HYDROCHLORIDE [Suspect]
     Indication: SCHIZOPHRENIA
     Route: 065

REACTIONS (2)
  - PULMONARY FIBROSIS [None]
  - EOSINOPHILIC PNEUMONIA [None]
